FAERS Safety Report 6784047-6 (Version None)
Quarter: 2010Q2

REPORT INFORMATION
  Report Type: 
  Country: None (occurrence: None)
  Receive Date: 20100622
  Receipt Date: 20100615
  Transmission Date: 20101027
  Serious: Yes (Hospitalization)
  Sender: FDA-Public Use
  Company Number: US-BAYER-201016770BCC

PATIENT
  Age: 77 Year
  Sex: Male
  Weight: 83 kg

DRUGS (5)
  1. ASPIRIN [Suspect]
     Indication: CORONARY ARTERIAL STENT INSERTION
     Route: 048
     Dates: start: 19900101
  2. ASPIRIN [Suspect]
     Dosage: TOTAL DAILY DOSE: 325 MG  UNIT DOSE: 325 MG
     Route: 048
     Dates: start: 20100301
  3. PLAVIX [Suspect]
     Indication: CORONARY ARTERIAL STENT INSERTION
     Dosage: TOTAL DAILY DOSE: 75 MG  UNIT DOSE: 75 MG
     Route: 048
     Dates: start: 20100301
  4. SYNTHROID [Concomitant]
     Route: 065
     Dates: start: 19900101
  5. CRESTOR [Concomitant]
     Route: 065
     Dates: start: 20100301

REACTIONS (7)
  - CORONARY ARTERY OCCLUSION [None]
  - DYSPNOEA [None]
  - INCREASED TENDENCY TO BRUISE [None]
  - MYALGIA [None]
  - POLLAKIURIA [None]
  - POST PROCEDURAL HAEMATOMA [None]
  - RHINORRHOEA [None]
